FAERS Safety Report 7651214-9 (Version None)
Quarter: 2011Q3

REPORT INFORMATION
  Report Type: 
  Country: None (occurrence: None)
  Receive Date: 20110802
  Receipt Date: 20110728
  Transmission Date: 20111222
  Serious: Yes (Other)
  Sender: FDA-Public Use
  Company Number: PHHY2011GB68652

PATIENT
  Age: 56 Year
  Sex: Female

DRUGS (2)
  1. LYRICA [Interacting]
     Indication: NEURALGIA
     Dosage: 300 MG, BID
     Route: 048
     Dates: start: 20100901, end: 20101201
  2. WARFARIN SODIUM [Suspect]
     Indication: PULMONARY EMBOLISM
     Route: 048

REACTIONS (2)
  - DRUG INTERACTION [None]
  - INTERNATIONAL NORMALISED RATIO DECREASED [None]
